FAERS Safety Report 7909843-0 (Version None)
Quarter: 2011Q4

REPORT INFORMATION
  Report Type: 
  Country: None (occurrence: None)
  Receive Date: 20111111
  Receipt Date: 20111103
  Transmission Date: 20120403
  Serious: Yes (Hospitalization, Other)
  Sender: FDA-Public Use
  Company Number: US-MERCK-1103USA03924

PATIENT
  Age: 75 Year
  Sex: Female
  Weight: 90 kg

DRUGS (9)
  1. POTASSIUM CHLORIDE [Concomitant]
     Indication: BLOOD POTASSIUM
     Route: 065
     Dates: start: 19990101
  2. TOPROL-XL [Concomitant]
     Indication: BLOOD PRESSURE
     Route: 065
     Dates: start: 19990101
  3. LASIX [Concomitant]
     Indication: POLYURIA
     Route: 065
     Dates: start: 19990101
  4. VITAMIN D (UNSPECIFIED) [Concomitant]
     Route: 065
     Dates: start: 20010101
  5. SINGULAIR [Concomitant]
     Indication: ASTHMA
     Route: 065
     Dates: start: 19990101
  6. OMEPRAZOLE [Concomitant]
     Route: 065
     Dates: start: 20030101
  7. BONIVA [Suspect]
     Indication: OSTEOPOROSIS
     Route: 048
     Dates: start: 20061001, end: 20080501
  8. FOSAMAX [Suspect]
     Indication: OSTEOPOROSIS
     Route: 048
     Dates: start: 20020101, end: 20061002
  9. CALCIUM (UNSPECIFIED) [Concomitant]
     Route: 065
     Dates: start: 20010101

REACTIONS (26)
  - STASIS DERMATITIS [None]
  - COLON CANCER [None]
  - DYSPHAGIA [None]
  - RECTOCELE [None]
  - DEHYDRATION [None]
  - PLEURAL EFFUSION [None]
  - PNEUMONIA [None]
  - LYMPHADENOPATHY [None]
  - ASTHMA [None]
  - NEPHROLITHIASIS [None]
  - GOITRE [None]
  - CALCIUM DEFICIENCY [None]
  - CHRONIC OBSTRUCTIVE PULMONARY DISEASE [None]
  - ANAL FISSURE [None]
  - PAIN IN EXTREMITY [None]
  - CELLULITIS [None]
  - HIP FRACTURE [None]
  - OBESITY [None]
  - DIVERTICULUM [None]
  - CORONARY ARTERY DISEASE [None]
  - CHRONIC SINUSITIS [None]
  - FALL [None]
  - LUNG ADENOCARCINOMA [None]
  - GASTROOESOPHAGEAL REFLUX DISEASE [None]
  - BRONCHITIS CHRONIC [None]
  - HAEMORRHOIDS [None]
